FAERS Safety Report 18285297 (Version 3)
Quarter: 2020Q4

REPORT INFORMATION
  Report Type: Spontaneous
  Country: CH (occurrence: CH)
  Receive Date: 20200918
  Receipt Date: 20201020
  Transmission Date: 20210113
  Serious: Yes (Congenital Anomaly)
  Sender: FDA-Public Use
  Company Number: CH-BIOGEN-2020BI00924007

PATIENT
  Sex: Male
  Weight: 3.1 kg

DRUGS (5)
  1. TYSABRI [Suspect]
     Active Substance: NATALIZUMAB
     Route: 064
     Dates: start: 201811, end: 201911
  2. RESYL [Concomitant]
     Indication: MATERNAL EXPOSURE TIMING UNSPECIFIED
     Route: 064
  3. TYSABRI [Suspect]
     Active Substance: NATALIZUMAB
     Indication: MATERNAL EXPOSURE TIMING UNSPECIFIED
     Route: 064
     Dates: start: 201911
  4. TYSABRI [Suspect]
     Active Substance: NATALIZUMAB
     Route: 064
  5. SOLMUCALM [Concomitant]
     Active Substance: ACETYLCYSTEINE\CHLORPHENIRAMINE MALEATE
     Indication: MATERNAL EXPOSURE TIMING UNSPECIFIED
     Route: 064

REACTIONS (2)
  - Foetal exposure during pregnancy [Recovered/Resolved]
  - Talipes [Unknown]

NARRATIVE: CASE EVENT DATE: 201911
